FAERS Safety Report 19184992 (Version 1)
Quarter: 2021Q2

REPORT INFORMATION
  Report Type: Spontaneous
  Country: US (occurrence: US)
  Receive Date: 20210427
  Receipt Date: 20210427
  Transmission Date: 20210717
  Serious: Yes (Death)
  Sender: FDA-Public Use
  Company Number: None

PATIENT
  Age: 15 Year
  Sex: Male
  Weight: 38.2 kg

DRUGS (11)
  1. AMPHOTERICIN B LIPOSOMAL [Concomitant]
     Active Substance: AMPHOTERICIN B
  2. MICAFUNGIN. [Concomitant]
     Active Substance: MICAFUNGIN SODIUM
  3. ONCASPAR [Suspect]
     Active Substance: PEGASPARGASE
  4. DAUNORUBICIN [Suspect]
     Active Substance: DAUNORUBICIN
     Dates: end: 20210317
  5. CEFEPIME [Concomitant]
     Active Substance: CEFEPIME HYDROCHLORIDE
  6. METHOTREXATE. [Suspect]
     Active Substance: METHOTREXATE
     Dates: end: 20210401
  7. CYTARABINE. [Suspect]
     Active Substance: CYTARABINE
     Dates: end: 20210322
  8. FLUCONAZOLE. [Concomitant]
     Active Substance: FLUCONAZOLE
  9. PREDNISOLONE. [Suspect]
     Active Substance: PREDNISOLONE
     Dates: end: 20210318
  10. VINCRISTINE SULFATE. [Suspect]
     Active Substance: VINCRISTINE SULFATE
     Dates: end: 20210317
  11. POSACONAZOLE [Concomitant]
     Active Substance: POSACONAZOLE

REACTIONS (21)
  - Colitis [None]
  - Cerebrovascular accident [None]
  - Posterior reversible encephalopathy syndrome [None]
  - Hypoxia [None]
  - Candida infection [None]
  - Bacterial infection [None]
  - Acid base balance abnormal [None]
  - Mental status changes [None]
  - Pyrexia [None]
  - Vascular device infection [None]
  - Central nervous system leukaemia [None]
  - Candida sepsis [None]
  - Respiratory failure [None]
  - General physical health deterioration [None]
  - Multiple organ dysfunction syndrome [None]
  - Febrile neutropenia [None]
  - Pleural effusion [None]
  - Activated partial thromboplastin time prolonged [None]
  - Fungal infection [None]
  - Pulmonary haemorrhage [None]
  - Blood bilirubin increased [None]

NARRATIVE: CASE EVENT DATE: 20210404
